FAERS Safety Report 5529046-7 (Version None)
Quarter: 2007Q4

REPORT INFORMATION
  Report Type: 
  Country: None (occurrence: None)
  Receive Date: 20071129
  Receipt Date: 20070123
  Transmission Date: 20080405
  Serious: No
  Sender: FDA-Public Use
  Company Number: A0621029A

PATIENT
  Age: 65 Year
  Sex: Female

DRUGS (12)
  1. WELLBUTRIN SR [Suspect]
     Indication: DEPRESSION
     Dosage: 150MG PER DAY
     Route: 048
  2. WELLBUTRIN XL [Suspect]
     Indication: DEPRESSION
     Dosage: 300MG PER DAY
     Route: 048
     Dates: start: 20060101
  3. FUROSEMIDE [Concomitant]
  4. ZETIA [Concomitant]
  5. LIPITOR [Concomitant]
  6. DYAZIDE [Concomitant]
  7. DIAZEPAM [Concomitant]
  8. VIVACTIL [Concomitant]
  9. ATACAND [Concomitant]
  10. ACETAMINOPHEN AND HYDROCODONE BITARTRATE [Concomitant]
  11. ALLEGRA [Concomitant]
  12. DEPO-MEDROL [Concomitant]

REACTIONS (2)
  - PHARMACEUTICAL PRODUCT COMPLAINT [None]
  - SOMNOLENCE [None]
